FAERS Safety Report 23668388 (Version 1)
Quarter: 2024Q1

REPORT INFORMATION
  Report Type: Spontaneous
  Country: CA (occurrence: CA)
  Receive Date: 20240325
  Receipt Date: 20240325
  Transmission Date: 20240409
  Serious: Yes (Other)
  Sender: FDA-Public Use
  Company Number: CA-PFIZER INC-PV202400022100

PATIENT
  Age: 9 Day
  Sex: Male

DRUGS (2)
  1. RAPAMUNE [Suspect]
     Active Substance: SIROLIMUS
     Indication: Vascular malformation
     Dosage: 1 MG
  2. RAPAMUNE [Suspect]
     Active Substance: SIROLIMUS
     Dosage: 0.15ML/MG, DAILY
     Route: 048
     Dates: start: 20240210

REACTIONS (3)
  - Neonatal gastrointestinal disorder [Unknown]
  - Off label use [Unknown]
  - Off label use [Unknown]

NARRATIVE: CASE EVENT DATE: 20240213
